FAERS Safety Report 7383928-2 (Version None)
Quarter: 2011Q1

REPORT INFORMATION
  Report Type: 
  Country: None (occurrence: None)
  Receive Date: 20110330
  Receipt Date: 20110228
  Transmission Date: 20110831
  Serious: No
  Sender: FDA-Public Use
  Company Number: US-MYLANLABS-2011S1002714

PATIENT
  Age: 66 Year
  Sex: Female

DRUGS (20)
  1. GLUCOSAMINE CHONDROITIN [Concomitant]
  2. MAGNESIUM [Concomitant]
  3. TRAZODONE HCL [Suspect]
     Indication: INSOMNIA
     Route: 048
     Dates: start: 19970101
  4. ALPRAZOLAM [Suspect]
     Indication: ANXIETY
     Route: 048
     Dates: start: 20080101, end: 20110120
  5. POTASSIUM [Concomitant]
  6. MULTIVITAMIN [Concomitant]
  7. VITAMIN B-12 [Concomitant]
  8. MELOXICAM [Concomitant]
  9. ALPRAZOLAM [Suspect]
     Indication: INSOMNIA
     Route: 048
     Dates: start: 20080101, end: 20110120
  10. ESTROGENIC SUBSTANCE [Concomitant]
  11. CLARITIN /00917501/ [Concomitant]
  12. PRILOSEC [Concomitant]
  13. PRENATAL VITAMINS [Concomitant]
  14. CALCIUM [Concomitant]
  15. ZINC [Concomitant]
  16. ACETAMINOPHEN [Concomitant]
  17. METOPROLOL [Concomitant]
  18. FUROSEMIDE [Concomitant]
  19. LEVOTHYROXINE SODIUM [Concomitant]
  20. BUPROPION HYDROCHLORIDE [Concomitant]

REACTIONS (2)
  - INSOMNIA [None]
  - DRUG INEFFECTIVE FOR UNAPPROVED INDICATION [None]
